FAERS Safety Report 5637239-3 (Version None)
Quarter: 2008Q1

REPORT INFORMATION
  Report Type: 
  Country: None (occurrence: None)
  Receive Date: 20080225
  Receipt Date: 20070404
  Transmission Date: 20080703
  Serious: No
  Sender: FDA-Public Use
  Company Number: US-BRISTOL-MYERS SQUIBB COMPANY-13738398

PATIENT
  Age: 56 Year
  Sex: Female
  Weight: 61 kg

DRUGS (7)
  1. KENALOG [Suspect]
     Indication: ARTHRALGIA
     Dates: start: 20060724
  2. CARBOCAINE [Suspect]
  3. LORAZEPAM [Concomitant]
  4. WARFARIN SODIUM [Concomitant]
  5. TOPROL [Concomitant]
  6. LIPITOR [Concomitant]
  7. LISINOPRIL [Concomitant]

REACTIONS (1)
  - SKIN DISCOLOURATION [None]
